FAERS Safety Report 9157699 (Version 1)
Quarter: 2013Q1

REPORT INFORMATION
  Report Type: Spontaneous
  Country: CH (occurrence: None)
  Receive Date: 20130212
  Receipt Date: 20130212
  Transmission Date: 20140127
  Serious: Yes (Other)
  Sender: FDA-Public Use
  Company Number: MC201300061

PATIENT
  Sex: Female

DRUGS (1)
  1. ANGIOMAX, ANGIOX (BIVALIRUDIN) INJECTION [Suspect]
     Indication: PERCUTANEOUS CORONARY INTERVENTION
     Dosage: UNK, BOLUS, INTRAVENOUS
     Route: 040

REACTIONS (2)
  - Bladder tamponade [None]
  - International normalised ratio increased [None]
